FAERS Safety Report 6064635-5 (Version None)
Quarter: 2009Q1

REPORT INFORMATION
  Report Type: 
  Country: None (occurrence: None)
  Receive Date: 20090204
  Receipt Date: 20080124
  Transmission Date: 20090719
  Serious: No
  Sender: FDA-Public Use
  Company Number: A0705186A

PATIENT
  Age: 57 Year
  Sex: Female

DRUGS (6)
  1. ARIXTRA [Suspect]
     Dosage: 7.5MG PER DAY
     Route: 058
     Dates: start: 20071201
  2. CHEMOTHERAPY [Concomitant]
     Indication: BREAST CANCER
  3. LISINOPRIL [Concomitant]
  4. METFORMIN [Concomitant]
  5. AVANDARYL [Concomitant]
  6. CELEXA [Concomitant]

REACTIONS (3)
  - COUGH [None]
  - HAEMOPTYSIS [None]
  - NASOPHARYNGITIS [None]
